FAERS Safety Report 4549409-6 (Version None)
Quarter: 2005Q1

REPORT INFORMATION
  Report Type: 
  Country: None (occurrence: None)
  Receive Date: 20050106
  Receipt Date: 20041220
  Transmission Date: 20050727
  Serious: Yes (Other)
  Sender: FDA-Public Use
  Company Number: JP_041105006

PATIENT
  Age: 13 Year
  Sex: Male
  Weight: 42 kg

DRUGS (1)
  1. HUMATROPE [Suspect]
     Indication: GROWTH HORMONE DEFICIENCY
     Dosage: 9.3 MG WEEK
     Dates: start: 20030417

REACTIONS (3)
  - ANTI-PLATELET ANTIBODY POSITIVE [None]
  - MEGAKARYOCYTES INCREASED [None]
  - THROMBOCYTOPENIC PURPURA [None]
